FAERS Safety Report 9672068 (Version 3)
Quarter: 2014Q2

REPORT INFORMATION
  Report Type: Spontaneous
  Country: JP (occurrence: JP)
  Receive Date: 20131106
  Receipt Date: 20140610
  Transmission Date: 20141212
  Serious: Yes (Death, Other)
  Sender: FDA-Public Use
  Company Number: JP-ROCHE-1295495

PATIENT
  Age: 48 Year
  Sex: Female

DRUGS (2)
  1. AVASTIN [Suspect]
     Indication: BREAST CANCER RECURRENT
     Dosage: DOSAGE IS UNCERTAIN.  DAY 1 AND 15
     Route: 041
  2. PACLITAXEL [Suspect]
     Indication: BREAST CANCER RECURRENT
     Dosage: DOSAGE IS UNCERTAIN.  DAY 1,8 AND 15
     Route: 041

REACTIONS (5)
  - Disease progression [Fatal]
  - Tumour necrosis [Unknown]
  - Haemorrhage [Recovering/Resolving]
  - Impaired healing [Recovering/Resolving]
  - Skin ulcer [Recovering/Resolving]
